FAERS Safety Report 4324739-1 (Version None)
Quarter: 2004Q1

REPORT INFORMATION
  Report Type: 
  Country: None (occurrence: None)
  Receive Date: 20040323
  Receipt Date: 20040310
  Transmission Date: 20041129
  Serious: Yes (Life-Threatening, Hospitalization, Disabling)
  Sender: FDA-Public Use
  Company Number: 2004-01052

PATIENT
  Age: 34 Year
  Sex: Female

DRUGS (4)
  1. ERGOLOID (WATSON LABORATORIES) [Suspect]
     Dosage: THREE 1 MG TABS OVER 4 DAYS, ORAL
     Route: 048
  2. RITONAVIR (RITONAVIR) [Suspect]
     Indication: HIV INFECTION
     Dosage: 600 MG, Q12H, ORAL
     Route: 048
     Dates: start: 20000101
  3. LAMIVUDINE (LAMIVUDINE) [Concomitant]
  4. STAVUDINE (STAVUDINE) [Concomitant]

REACTIONS (2)
  - COMA [None]
  - DRUG INTERACTION [None]
